FAERS Safety Report 4948623-5 (Version None)
Quarter: 2006Q1

REPORT INFORMATION
  Report Type: 
  Country: None (occurrence: None)
  Receive Date: 20060313
  Receipt Date: 20060228
  Transmission Date: 20060701
  Serious: Yes (Death, Hospitalization)
  Sender: FDA-Public Use
  Company Number: 2006032953

PATIENT
  Age: 82 Year
  Sex: Male

DRUGS (5)
  1. ZOLOFT [Suspect]
     Indication: ILL-DEFINED DISORDER
     Dosage: ORAL
     Route: 048
  2. PREVISCAN (FLUNDIONE) [Suspect]
     Indication: ILL-DEFINED DISORDER
     Dosage: 10 MG (1 IN 1 D),ORAL
     Route: 048
  3. STILNOX (ZOLPIDEM) [Concomitant]
  4. NEXIUM [Concomitant]
  5. LEVOTHYROXINE SODIUM [Concomitant]

REACTIONS (36)
  - ABDOMINAL PAIN [None]
  - ABNORMAL BEHAVIOUR [None]
  - ACTIVATED PARTIAL THROMBOPLASTIN TIME PROLONGED [None]
  - AGITATION [None]
  - ANAEMIA MACROCYTIC [None]
  - APHASIA [None]
  - BODY TEMPERATURE DECREASED [None]
  - BRAIN COMPRESSION [None]
  - BRAIN OEDEMA [None]
  - CAROTID BRUIT [None]
  - COGNITIVE DISORDER [None]
  - DISORIENTATION [None]
  - ELECTROCARDIOGRAM T WAVE INVERSION [None]
  - EXTENSOR PLANTAR RESPONSE [None]
  - EXTRASYSTOLES [None]
  - FALL [None]
  - HAEMATOMA [None]
  - HEART RATE INCREASED [None]
  - HYPERGLYCAEMIA [None]
  - HYPERTENSION [None]
  - HYPERTONIA [None]
  - HYPOKALAEMIA [None]
  - HYPOTONIA [None]
  - LEUKOCYTOSIS [None]
  - LYMPHOCYTOSIS [None]
  - MIOSIS [None]
  - MONOPARESIS [None]
  - NAUSEA [None]
  - PAIN [None]
  - PERIORBITAL HAEMATOMA [None]
  - RENAL FAILURE [None]
  - RESPIRATORY RATE INCREASED [None]
  - SUBDURAL HAEMATOMA [None]
  - SUBDURAL HAEMORRHAGE [None]
  - TACHYARRHYTHMIA [None]
  - TACHYCARDIA [None]
